FAERS Safety Report 6391043-X (Version None)
Quarter: 2009Q4

REPORT INFORMATION
  Report Type: 
  Country: None (occurrence: None)
  Receive Date: 20091007
  Receipt Date: 20090924
  Transmission Date: 20100525
  Serious: Yes (Hospitalization)
  Sender: FDA-Public Use
  Company Number: US-RB-019717-09

PATIENT
  Age: 64 Year
  Sex: Female

DRUGS (2)
  1. MUCINEX DM [Suspect]
     Indication: COUGH
     Route: 048
  2. AMOXICILLIN [Concomitant]
     Indication: COUGH

REACTIONS (8)
  - ASTHMA [None]
  - BRONCHIAL HYPERREACTIVITY [None]
  - BRONCHITIS [None]
  - GASTROOESOPHAGEAL REFLUX DISEASE [None]
  - OBESITY [None]
  - PULMONARY CONGESTION [None]
  - PYREXIA [None]
  - SLEEP APNOEA SYNDROME [None]
